FAERS Safety Report 10628346 (Version 1)
Quarter: 2014Q4

REPORT INFORMATION
  Report Type: Spontaneous
  Country: US (occurrence: US)
  Receive Date: 20141205
  Receipt Date: 20141205
  Transmission Date: 20150529
  Serious: Yes (Life-Threatening)
  Sender: FDA-Public Use
  Company Number: US-BRISTOL-MYERS SQUIBB COMPANY-21298831

PATIENT
  Age: 19 Year
  Sex: Female

DRUGS (6)
  1. ABILIFY [Suspect]
     Active Substance: ARIPIPRAZOLE
     Indication: SCHIZOPHRENIA
     Route: 048
     Dates: start: 201407, end: 20140807
  2. ABILIFY MAINTENA [Suspect]
     Active Substance: ARIPIPRAZOLE
     Indication: SCHIZOPHRENIA
     Route: 030
     Dates: start: 20140729, end: 20140729
  3. COGENTIN [Concomitant]
     Active Substance: BENZTROPINE MESYLATE
  4. CLOZAPINE. [Concomitant]
     Active Substance: CLOZAPINE
  5. ATIVAN [Concomitant]
     Active Substance: LORAZEPAM
  6. BENADRYL [Concomitant]
     Active Substance: DIPHENHYDRAMINE HYDROCHLORIDE

REACTIONS (1)
  - Dystonia [Unknown]

NARRATIVE: CASE EVENT DATE: 20140807
